FAERS Safety Report 9331692 (Version 1)
Quarter: 2013Q2

REPORT INFORMATION
  Report Type: Spontaneous
  Country: DK (occurrence: DK)
  Receive Date: 20130605
  Receipt Date: 20130605
  Transmission Date: 20140414
  Serious: Yes (Hospitalization)
  Sender: FDA-Public Use
  Company Number: DK-ASTRAZENECA-2013SE37723

PATIENT
  Age: 37 Year
  Sex: Female

DRUGS (3)
  1. SEROQUEL [Suspect]
     Indication: SCHIZOPHRENIA
     Dosage: 25-50 MG DAILY
     Route: 048
  2. SERTRALIN ^KRKA^ [Concomitant]
     Indication: DEPRESSION
  3. TRILAFON DEKANOAT [Concomitant]
     Indication: SCHIZOPHRENIA

REACTIONS (3)
  - Abnormal behaviour [Unknown]
  - Somnambulism [Unknown]
  - Amnesia [Unknown]
